FAERS Safety Report 22270811 (Version 1)
Quarter: 2023Q2

REPORT INFORMATION
  Report Type: Spontaneous
  Country: US (occurrence: None)
  Receive Date: 20230428
  Receipt Date: 20230428
  Transmission Date: 20230722
  Serious: Yes (Death)
  Sender: FDA-Public Use
  Company Number: None

PATIENT
  Age: 74 Year
  Sex: Male
  Weight: 73.12 kg

DRUGS (10)
  1. PACLITAXEL PROTEIN-BOUND PARTICLES FOR INJECTABLE SUSPENSION (ALBUMIN- [Suspect]
     Active Substance: PACLITAXEL
     Indication: Pancreatic carcinoma
     Dosage: OTHER FREQUENCY : D1, 8, 15, Q28D;?
     Route: 042
  2. DOXYCYCLINE [Concomitant]
     Active Substance: DOXYCYCLINE
  3. FERROUS SULFATE [Concomitant]
     Active Substance: FERROUS SULFATE
  4. FUROSEMIDE [Concomitant]
     Active Substance: FUROSEMIDE
  5. HEMOCYTE-PLUS [Concomitant]
  6. KLOR-CON [Concomitant]
     Active Substance: POTASSIUM CHLORIDE
  7. MAGOX [Concomitant]
  8. MOVANTIK [Concomitant]
     Active Substance: NALOXEGOL OXALATE
  9. NIFEDIPINE [Concomitant]
     Active Substance: NIFEDIPINE
  10. TRAZODONE [Concomitant]
     Active Substance: TRAZODONE HYDROCHLORIDE

REACTIONS (1)
  - Death [None]

NARRATIVE: CASE EVENT DATE: 20230406
